FAERS Safety Report 8534290-0 (Version None)
Quarter: 2012Q2

REPORT INFORMATION
  Report Type: 
  Country: None (occurrence: None)
  Receive Date: 20120627
  Receipt Date: 20120613
  Transmission Date: 20120825
  Serious: Yes (Hospitalization)
  Sender: FDA-Public Use
  Company Number: 2012PROUSA01439

PATIENT
  Age: 79 Year
  Sex: Male
  Weight: 81.6 kg

DRUGS (20)
  1. FOSAMAX [Concomitant]
  2. COLACE (DOCUSATE SODIUM) [Concomitant]
  3. ADVAIR HFA [Concomitant]
  4. SENNA	/00142201/ (SENNA ALEXANDRINA) [Concomitant]
  5. LACTULOSE [Concomitant]
  6. GLUCOTROL [Concomitant]
  7. AMLODIPINE [Concomitant]
  8. ATORVASTATIN [Concomitant]
  9. PROSCAR [Concomitant]
  10. FLONASE [Concomitant]
  11. TAMSULOSIN HCL [Concomitant]
  12. PROVENGE [Suspect]
     Indication: PROSTATE CANCER METASTATIC
     Dosage: 250 ML, SINGLE INTRAVENOUS
     Dates: start: 20120503, end: 20120503
  13. PROVENGE [Suspect]
     Indication: PROSTATE CANCER METASTATIC
     Dosage: 250 ML, SINGLE INTRAVENOUS
     Dates: start: 20120517, end: 20120517
  14. OSCAL /00751519/ (CALCIUM CARBONATE) [Concomitant]
  15. BICALUTAMIDE [Concomitant]
  16. CARVEDILOL [Concomitant]
  17. PROVENGE [Suspect]
  18. LASIX	/00032601/ (FUROSEMIDE) [Concomitant]
  19. BENADRYL [Concomitant]
  20. HALFPRIN (ACETYLSALICYLIC ACID) TABLET [Concomitant]

REACTIONS (1)
  - MYOCARDIAL INFARCTION [None]
